FAERS Safety Report 8062074-9 (Version None)
Quarter: 2012Q1

REPORT INFORMATION
  Report Type: 
  Country: None (occurrence: None)
  Receive Date: 20120123
  Receipt Date: 20120111
  Transmission Date: 20120608
  Serious: Yes (Other)
  Sender: FDA-Public Use
  Company Number: JP-GENZYME-THYM-1002634

PATIENT

DRUGS (17)
  1. RED BLOOD CELLS, CONCENTRATED [Concomitant]
     Indication: APLASTIC ANAEMIA
     Dosage: 2 IU, UNK
     Route: 065
     Dates: start: 20071031
  2. CORTICOSTEROIDS [Concomitant]
     Indication: APLASTIC ANAEMIA
     Dosage: UNK
     Dates: start: 20080503
  3. CLEMASTINE FUMARATE [Concomitant]
     Indication: PREMEDICATION
     Dosage: 1 MG, QD
     Route: 065
     Dates: start: 20110422, end: 20110423
  4. REBAMIPIDE [Concomitant]
     Indication: PROPHYLAXIS
     Dosage: 100 MG, TID
     Route: 065
     Dates: start: 20071012
  5. LACTOMIN [Concomitant]
     Indication: APLASTIC ANAEMIA
     Dosage: UNK
     Route: 065
     Dates: start: 20071012
  6. PLATELETS, CONCENTRATED [Concomitant]
     Indication: APLASTIC ANAEMIA
     Dosage: 10 IU, UNK
     Route: 065
     Dates: start: 20080104
  7. PLATELETS, CONCENTRATED [Concomitant]
     Dosage: UNK
     Route: 065
     Dates: start: 20071015
  8. DEFERASIROX [Concomitant]
     Indication: APLASTIC ANAEMIA
     Dosage: UNK
     Route: 065
     Dates: start: 20071012
  9. LOXOPROFEN SODIUM [Concomitant]
     Indication: ANTIPYRESIS
     Dosage: 60 MG, QD
     Dates: start: 20110422, end: 20110423
  10. CYCLOSPORINE [Concomitant]
     Indication: APLASTIC ANAEMIA
     Dosage: 100 MG, BID
     Route: 065
     Dates: start: 20080503
  11. FAMOTIDINE [Concomitant]
     Indication: PROPHYLAXIS
     Dosage: 20 MG, BID
     Route: 065
     Dates: start: 20071012
  12. THYMOGLOBULIN [Suspect]
     Indication: APLASTIC ANAEMIA
     Dosage: 225 MG, QD
     Route: 042
     Dates: start: 20110422, end: 20110423
  13. CARBAZOCHROME SODIUM SULFONATE [Concomitant]
     Indication: APLASTIC ANAEMIA
     Dosage: 30 MG, TID
     Route: 065
     Dates: start: 20071012
  14. RED BLOOD CELLS, CONCENTRATED [Concomitant]
     Dosage: UNK
     Route: 065
     Dates: start: 20071012
  15. LOXOPROFEN SODIUM [Concomitant]
     Indication: PREMEDICATION
     Dosage: 60 MG, QD
     Dates: start: 20110422, end: 20110423
  16. METHYLPREDNISOLONE SODIUM SUCCINATE [Concomitant]
     Indication: PREMEDICATION
     Dosage: 125 MG, QD
     Route: 065
     Dates: start: 20110422, end: 20110502
  17. SENNOSIDE [Concomitant]
     Indication: CONSTIPATION
     Dosage: 12 MG, BID
     Route: 065
     Dates: start: 20071012

REACTIONS (2)
  - ANAPHYLACTOID SHOCK [None]
  - SHOCK [None]
